FAERS Safety Report 21465826 (Version 4)
Quarter: 2022Q4

REPORT INFORMATION
  Report Type: Spontaneous
  Country: DE (occurrence: DE)
  Receive Date: 20221017
  Receipt Date: 20221221
  Transmission Date: 20230113
  Serious: Yes (Hospitalization, Other)
  Sender: FDA-Public Use
  Company Number: DE-BRISTOL-MYERS SQUIBB COMPANY-2022-120157

PATIENT
  Age: 39 Year
  Sex: Female
  Weight: 52.1 kg

DRUGS (3)
  1. ZEPOSIA [Suspect]
     Active Substance: OZANIMOD HYDROCHLORIDE
     Indication: Colitis ulcerative
     Route: 048
     Dates: start: 202202
  2. PANTOPRAZOLE SODIUM [Concomitant]
     Active Substance: PANTOPRAZOLE SODIUM
     Indication: Colitis ulcerative
     Dates: start: 202202
  3. PREDNISOLONE [Concomitant]
     Active Substance: PREDNISOLONE
     Indication: Colitis ulcerative
     Route: 048
     Dates: start: 202202, end: 20220811

REACTIONS (6)
  - Cardiac failure [Recovering/Resolving]
  - Myocarditis [Recovering/Resolving]
  - Lymphopenia [Recovered/Resolved]
  - Pulmonary embolism [Recovering/Resolving]
  - Gastritis [Recovering/Resolving]
  - Granulomatosis with polyangiitis [Unknown]

NARRATIVE: CASE EVENT DATE: 20220801
